FAERS Safety Report 5209829-3 (Version None)
Quarter: 2007Q1

REPORT INFORMATION
  Report Type: 
  Country: None (occurrence: None)
  Receive Date: 20070116
  Receipt Date: 20070105
  Transmission Date: 20070707
  Serious: Yes (Hospitalization)
  Sender: FDA-Public Use
  Company Number: FR-MERCK-0701FRA00006

PATIENT
  Age: 55 Year
  Sex: Female

DRUGS (6)
  1. ZETIA [Suspect]
     Indication: DYSLIPIDAEMIA
     Route: 048
     Dates: start: 20061213, end: 20061201
  2. PRAVASTATIN SODIUM [Concomitant]
     Indication: DYSLIPIDAEMIA
     Route: 048
  3. LORAZEPAM [Concomitant]
     Route: 048
  4. LEVOCETIRIZINE HYDROCHLORIDE [Concomitant]
     Indication: RHINITIS
     Route: 048
  5. TETRAZEPAM [Concomitant]
     Indication: NECK PAIN
     Route: 048
  6. PIROXICAM BETADEX [Concomitant]
     Indication: OSTEOARTHRITIS
     Route: 048

REACTIONS (2)
  - CHOLECYSTITIS [None]
  - MUSCULOSKELETAL PAIN [None]
